FAERS Safety Report 9352101 (Version 1)
Quarter: 2013Q2

REPORT INFORMATION
  Report Type: Spontaneous
  Country: FR (occurrence: FR)
  Receive Date: 20130617
  Receipt Date: 20130617
  Transmission Date: 20140414
  Serious: Yes (Other)
  Sender: FDA-Public Use
  Company Number: FR-MYLANLABS-2013S1012197

PATIENT
  Age: 69 Year
  Sex: Female

DRUGS (3)
  1. LEVOFLOXACINE [Suspect]
     Indication: BRONCHITIS
     Route: 048
     Dates: start: 20130410, end: 20130413
  2. MIFLASONE [Suspect]
     Indication: BRONCHITIS
     Route: 055
     Dates: start: 20130410, end: 20130417
  3. EXOMUC [Suspect]
     Indication: BRONCHITIS
     Route: 048
     Dates: start: 20130410, end: 20130418

REACTIONS (7)
  - Aphonia [Recovered/Resolved]
  - Bronchospasm [Recovered/Resolved]
  - Cough [Recovered/Resolved]
  - Dyspnoea [Recovered/Resolved]
  - Migraine [Recovered/Resolved]
  - Muscle spasms [Recovered/Resolved]
  - Constipation [Recovered/Resolved]
